FAERS Safety Report 19538187 (Version 1)
Quarter: 2021Q3

REPORT INFORMATION
  Report Type: Spontaneous
  Country: US (occurrence: US)
  Receive Date: 20210714
  Receipt Date: 20210714
  Transmission Date: 20211014
  Serious: Yes (Hospitalization, Other)
  Sender: FDA-Public Use
  Company Number: US-AUROBINDO-AUR-APL-2019-088198

PATIENT
  Age: 6 Year
  Sex: Male

DRUGS (5)
  1. MORPHINE [Interacting]
     Active Substance: MORPHINE
     Dosage: 0.033 MG/KG, Q.H.
     Route: 041
  2. MORPHINE [Interacting]
     Active Substance: MORPHINE
     Indication: CANCER PAIN
     Dosage: 0.5 MG/KG, UNK
     Route: 040
  3. GABAPENTIN. [Suspect]
     Active Substance: GABAPENTIN
     Indication: CANCER PAIN
     Dosage: UNK
     Route: 065
  4. MORPHINE [Interacting]
     Active Substance: MORPHINE
     Dosage: 0.8 MG/KG, Q.H.
     Route: 041
  5. MORPHINE [Interacting]
     Active Substance: MORPHINE
     Dosage: 0.05 UNK, UNK
     Route: 040

REACTIONS (5)
  - Sedation complication [Unknown]
  - Hypoxia [Unknown]
  - Bradypnoea [Unknown]
  - Drug interaction [Unknown]
  - Urinary retention [Unknown]
